FAERS Safety Report 8066513-9 (Version None)
Quarter: 2012Q1

REPORT INFORMATION
  Report Type: 
  Country: None (occurrence: None)
  Receive Date: 20120124
  Receipt Date: 20120113
  Transmission Date: 20120608
  Serious: Yes (Other)
  Sender: FDA-Public Use
  Company Number: PHFR2012GB000664

PATIENT
  Age: 78 Year
  Sex: Female
  Weight: 107 kg

DRUGS (4)
  1. MOXONIDINE [Concomitant]
     Dosage: 600 UG, PER DAY
  2. HYDROXOCOBALAMIN [Concomitant]
     Indication: PERNICIOUS ANAEMIA
  3. ALISKIREN [Suspect]
     Indication: HYPERTENSION
     Dosage: 150 MG, UNK
     Route: 048
     Dates: start: 20111222, end: 20120105
  4. LAXIDO [Concomitant]

REACTIONS (3)
  - HALLUCINATION, VISUAL [None]
  - PARAESTHESIA [None]
  - ANXIETY [None]
